FAERS Safety Report 8012721-2 (Version None)
Quarter: 2011Q4

REPORT INFORMATION
  Report Type: 
  Country: None (occurrence: None)
  Receive Date: 20111229
  Receipt Date: 20111220
  Transmission Date: 20120403
  Serious: Yes (Hospitalization, Other)
  Sender: FDA-Public Use
  Company Number: US-BAYER-2011-033470

PATIENT
  Age: 13 Year
  Sex: Female

DRUGS (3)
  1. PREVACID [Concomitant]
     Indication: ABDOMINAL PAIN
     Dosage: 30 MG, QD
     Dates: start: 20090325
  2. YAZ [Suspect]
     Indication: PREMENSTRUAL SYNDROME
     Dosage: UNK
     Route: 048
     Dates: start: 20080401, end: 20090901
  3. MIRALAX [Concomitant]
     Indication: CONSTIPATION
     Dosage: 17 G, QD
     Dates: start: 20090325

REACTIONS (4)
  - CHOLELITHIASIS [None]
  - PAIN [None]
  - GALLBLADDER DISORDER [None]
  - INJURY [None]
